FAERS Safety Report 5065243-5 (Version None)
Quarter: 2006Q3

REPORT INFORMATION
  Report Type: 
  Country: None (occurrence: None)
  Receive Date: 20060707
  Receipt Date: 20060426
  Transmission Date: 20061208
  Serious: Yes (Other)
  Sender: FDA-Public Use
  Company Number: SUS1-2006-00487

PATIENT
  Age: 14 Year
  Sex: Male

DRUGS (3)
  1. PENTASA [Suspect]
     Indication: CROHN'S DISEASE
     Dosage: 250 MG, 3X/DAY:TID, ORAL
     Route: 048
     Dates: start: 20060308, end: 20060313
  2. SULFASALAZINE [Suspect]
     Indication: CROHN'S DISEASE
     Dosage: 500 MG, 3X/DAY:TID, ORAL
     Route: 048
     Dates: start: 20060208, end: 20060307
  3. METRONIDAZOLE BENZOATE (METRONIDAZOLE BENZOATE) [Concomitant]

REACTIONS (1)
  - LEUKOPENIA [None]
